FAERS Safety Report 4268106-8 (Version None)
Quarter: 2004Q1

REPORT INFORMATION
  Report Type: 
  Country: None (occurrence: None)
  Receive Date: 20040109
  Receipt Date: 20040105
  Transmission Date: 20041129
  Serious: Yes (Other)
  Sender: FDA-Public Use
  Company Number: PHFR2004GB00446

PATIENT
  Age: 25 Year
  Sex: Male

DRUGS (1)
  1. TEGRETOL [Suspect]
     Dosage: 400MG/DAY
     Route: 048
     Dates: start: 20030828, end: 20030901

REACTIONS (2)
  - ASTHMA [None]
  - DISEASE RECURRENCE [None]
